FAERS Safety Report 10327328 (Version 1)
Quarter: 2014Q3

REPORT INFORMATION
  Report Type: Spontaneous
  Country: US (occurrence: US)
  Receive Date: 20140721
  Receipt Date: 20140721
  Transmission Date: 20150326
  Serious: No
  Sender: FDA-Public Use
  Company Number: US-009507513-1407USA006989

PATIENT
  Age: 71 Year
  Sex: Male
  Weight: 73.47 kg

DRUGS (1)
  1. JANUVIA [Suspect]
     Active Substance: SITAGLIPTIN PHOSPHATE
     Indication: DIABETES MELLITUS
     Dosage: 1 TABLET, ONCE PER DAY
     Route: 048
     Dates: start: 20120913, end: 20121114

REACTIONS (6)
  - Rash [Unknown]
  - Pruritus [Unknown]
  - Back pain [Unknown]
  - Abdominal pain [Unknown]
  - Nasal congestion [Unknown]
  - Rhinorrhoea [Unknown]

NARRATIVE: CASE EVENT DATE: 20121115
